FAERS Safety Report 9082328 (Version 1)
Quarter: 2013Q1

REPORT INFORMATION
  Report Type: Report from Study
  Country: US (occurrence: US)
  Receive Date: 20130131
  Receipt Date: 20130131
  Transmission Date: 20140127
  Serious: No
  Sender: FDA-Public Use
  Company Number: US-ABBOTT-12P-163-0994082-00

PATIENT
  Age: 51 Year
  Sex: Male

DRUGS (7)
  1. HUMIRA [Suspect]
     Indication: COLITIS ULCERATIVE
     Dates: start: 20120926
  2. HUMIRA [Suspect]
  3. METFORMIN [Concomitant]
     Indication: DIABETES MELLITUS
     Dosage: 500MG 5 TIMES DAILY
  4. BENAZEPRIL [Concomitant]
     Indication: HYPERTENSION
     Dosage: 1-2.5 DAILY
  5. APRAZO [Concomitant]
     Indication: PRODUCT USED FOR UNKNOWN INDICATION
     Dosage: 0.375 4 TIMES DAILY
  6. HYDROCODONE [Concomitant]
     Indication: ARTHROPATHY
  7. HYDROCODONE [Concomitant]
     Indication: COLITIS ULCERATIVE
     Dosage: EVERY OTHER DAY

REACTIONS (3)
  - Device malfunction [Recovered/Resolved]
  - Injection site pain [Recovered/Resolved]
  - Injection site pain [Recovered/Resolved]
